FAERS Safety Report 15582948 (Version 2)
Quarter: 2019Q3

REPORT INFORMATION
  Report Type: Spontaneous
  Country: PH (occurrence: PH)
  Receive Date: 20181103
  Receipt Date: 20190917
  Transmission Date: 20191004
  Serious: Yes (Hospitalization, Other)
  Sender: FDA-Public Use
  Company Number: PH-IPCA LABORATORIES LIMITED-IPC-2018-PH-002212

PATIENT

DRUGS (8)
  1. ETHAMBUTOL [Suspect]
     Active Substance: ETHAMBUTOL HYDROCHLORIDE
     Indication: PULMONARY TUBERCULOSIS
     Dosage: UNK
     Route: 065
  2. ISONIAZID. [Suspect]
     Active Substance: ISONIAZID
     Dosage: UNK
  3. ISONIAZID. [Suspect]
     Active Substance: ISONIAZID
     Indication: PULMONARY TUBERCULOSIS
     Dosage: UNK
     Route: 065
  4. PYRAZINAMIDE. [Suspect]
     Active Substance: PYRAZINAMIDE
     Indication: PULMONARY TUBERCULOSIS
     Dosage: UNK
     Route: 065
  5. LINEZOLID. [Suspect]
     Active Substance: LINEZOLID
     Indication: PRODUCT USED FOR UNKNOWN INDICATION
     Dosage: UNK
     Route: 042
  6. TRAMADOL. [Suspect]
     Active Substance: TRAMADOL
     Indication: PROCEDURAL PAIN
     Dosage: UNK
     Route: 065
  7. PIPERACILLIN?TAZOBACTAM [Concomitant]
     Indication: PRODUCT USED FOR UNKNOWN INDICATION
     Dosage: UNK
     Route: 042
  8. VANCOMYCIN [Concomitant]
     Active Substance: VANCOMYCIN
     Indication: PRODUCT USED FOR UNKNOWN INDICATION
     Dosage: UNK
     Route: 065

REACTIONS (2)
  - Serotonin syndrome [Recovered/Resolved]
  - Rhabdomyolysis [Recovered/Resolved]
